FAERS Safety Report 5317713-X (Version None)
Quarter: 2007Q2

REPORT INFORMATION
  Report Type: 
  Country: None (occurrence: None)
  Receive Date: 20070507
  Receipt Date: 20070424
  Transmission Date: 20071010
  Serious: Yes (Death)
  Sender: FDA-Public Use
  Company Number: PRIUSA2000013520

PATIENT
  Sex: Male
  Weight: 50.6 kg

DRUGS (15)
  1. REMICADE [Suspect]
     Indication: RHEUMATOID ARTHRITIS
     Route: 041
     Dates: start: 19991215
  2. REMICADE [Suspect]
     Indication: JUVENILE ARTHRITIS
     Route: 041
     Dates: start: 19991215
  3. MERCAPTOPURINE [Suspect]
     Route: 048
     Dates: start: 19991108
  4. MERCAPTOPURINE [Suspect]
     Route: 048
     Dates: start: 19991108
  5. MERCAPTOPURINE [Suspect]
     Indication: DRUG USE FOR UNKNOWN INDICATION
     Route: 048
     Dates: start: 19991108
  6. METHOTREXATE [Suspect]
     Route: 030
  7. METHOTREXATE [Suspect]
     Route: 030
  8. METHOTREXATE [Suspect]
     Indication: DRUG USE FOR UNKNOWN INDICATION
     Route: 030
  9. SANDIMMUNE [Concomitant]
     Dates: start: 19990727
  10. DEFLAZACORT [Concomitant]
  11. LOSEC [Concomitant]
  12. NAPROSYN [Concomitant]
  13. MIACALCIN [Concomitant]
  14. TREXAN [Concomitant]
  15. ENBREL [Concomitant]
     Dates: start: 19990716

REACTIONS (3)
  - BONE MARROW FAILURE [None]
  - NEUTROPENIA [None]
  - PNEUMOCYSTIS JIROVECI PNEUMONIA [None]
